FAERS Safety Report 22057407 (Version 1)
Quarter: 2023Q1

REPORT INFORMATION
  Report Type: Spontaneous
  Country: ES (occurrence: ES)
  Receive Date: 20230303
  Receipt Date: 20230303
  Transmission Date: 20230418
  Serious: Yes (Other)
  Sender: FDA-Public Use
  Company Number: None

PATIENT
  Age: 41 Year
  Sex: Female
  Weight: 90 kg

DRUGS (5)
  1. TECFIDERA [Suspect]
     Active Substance: DIMETHYL FUMARATE
     Indication: Multiple sclerosis
     Dosage: 2 CAPSULES PER DAY OF 240 MG
     Route: 050
     Dates: start: 20220418, end: 20221212
  2. LORAZEPAM [Concomitant]
     Active Substance: LORAZEPAM
     Indication: Anxiety
     Dosage: 1 PER DAY
     Route: 050
     Dates: start: 20170201
  3. ESOMEPRAZOLE [Concomitant]
     Active Substance: ESOMEPRAZOLE
     Indication: Gastritis
     Dosage: 1 PER DAY
     Route: 050
     Dates: start: 20220718, end: 20230131
  4. ZOPICLONE [Concomitant]
     Active Substance: ZOPICLONE
     Indication: Insomnia
     Dosage: 0.5 PER DAY
     Route: 050
     Dates: start: 20170201
  5. CALCIFEDIOL [Concomitant]
     Active Substance: CALCIFEDIOL
     Indication: Vitamin D deficiency
     Dosage: 1 PER DAY
     Route: 050
     Dates: start: 20220401, end: 20221101

REACTIONS (13)
  - Abdominal distension [Recovered/Resolved]
  - Tongue discolouration [Recovered/Resolved]
  - Tachycardia [Recovered/Resolved]
  - Liver function test abnormal [Unknown]
  - Headache [Recovered/Resolved]
  - Pain of skin [Recovered/Resolved]
  - Palpitations [Recovered/Resolved]
  - Leukopenia [Not Recovered/Not Resolved]
  - Flushing [Recovered/Resolved]
  - Abdominal pain upper [Recovered/Resolved]
  - Alopecia [Recovered/Resolved]
  - Abdominal pain upper [Recovered/Resolved]
  - Flushing [Recovered/Resolved]

NARRATIVE: CASE EVENT DATE: 20220418
